FAERS Safety Report 12196753 (Version 3)
Quarter: 2016Q2

REPORT INFORMATION
  Report Type: Spontaneous
  Country: US (occurrence: US)
  Receive Date: 20160321
  Receipt Date: 20160404
  Transmission Date: 20160815
  Serious: Yes (Hospitalization, Other)
  Sender: FDA-Public Use
  Company Number: US-ACTELION-A-NJ2016-133102

PATIENT
  Age: 56 Year
  Sex: Female

DRUGS (1)
  1. UPTRAVI [Suspect]
     Active Substance: SELEXIPAG
     Indication: PULMONARY ARTERIAL HYPERTENSION
     Dosage: 200 MCG, BID
     Route: 048
     Dates: start: 20160309, end: 20160324

REACTIONS (9)
  - Nausea [Unknown]
  - Pyrexia [Unknown]
  - Headache [Unknown]
  - Malaise [Unknown]
  - Pneumonia [Unknown]
  - Pleural effusion [Unknown]
  - Back pain [Unknown]
  - Dyspnoea [Unknown]
  - Chills [Unknown]

NARRATIVE: CASE EVENT DATE: 20160312
